FAERS Safety Report 6244349-9 (Version None)
Quarter: 2009Q2

REPORT INFORMATION
  Report Type: 
  Country: None (occurrence: None)
  Receive Date: 20090625
  Receipt Date: 20090622
  Transmission Date: 20091009
  Serious: Yes (Other)
  Sender: FDA-Public Use
  Company Number: CN-ROCHE-639973

PATIENT
  Age: 50 Year
  Sex: Female

DRUGS (3)
  1. XELODA [Suspect]
     Route: 048
     Dates: start: 20090415, end: 20090605
  2. HERCEPTIN [Suspect]
     Dosage: ONE TREATMENT CYCLE INCLUDED 3 WEEKS.
     Route: 041
     Dates: start: 20090415, end: 20090605
  3. DOCETAXEL [Suspect]
     Route: 041
     Dates: start: 20090415, end: 20090605

REACTIONS (1)
  - METASTASES TO CENTRAL NERVOUS SYSTEM [None]
